FAERS Safety Report 8421272-2 (Version None)
Quarter: 2012Q2

REPORT INFORMATION
  Report Type: 
  Country: None (occurrence: None)
  Receive Date: 20120608
  Receipt Date: 20120606
  Transmission Date: 20120825
  Serious: Yes (Other)
  Sender: FDA-Public Use
  Company Number: US-BAYER-2012-056461

PATIENT
  Age: 20 Year
  Sex: Female

DRUGS (4)
  1. DROSPIRENONE AND ETHINYL ESTRADIOL [Suspect]
     Dosage: UNK
     Dates: start: 20090401, end: 20091001
  2. YASMIN [Suspect]
     Dosage: UNK
     Dates: start: 20070801, end: 20091001
  3. DROSPIRENONE AND ETHINYL ESTRADIOL [Suspect]
     Dosage: UNK
     Dates: start: 20080501, end: 20091001
  4. YAZ [Suspect]
     Dosage: UNK
     Dates: start: 20070801, end: 20091001

REACTIONS (7)
  - CHOLECYSTECTOMY [None]
  - INJURY [None]
  - EMOTIONAL DISTRESS [None]
  - FEAR OF DEATH [None]
  - PAIN [None]
  - DEPRESSION [None]
  - NERVOUSNESS [None]
